FAERS Safety Report 23063240 (Version 1)
Quarter: 2023Q4

REPORT INFORMATION
  Report Type: Spontaneous
  Country: US (occurrence: None)
  Receive Date: 20231012
  Receipt Date: 20231012
  Transmission Date: 20240110
  Serious: Yes (Other)
  Sender: FDA-Public Use
  Company Number: None

PATIENT
  Age: 35 Year
  Sex: Female
  Weight: 52 kg

DRUGS (5)
  1. VOCLOSPORIN [Suspect]
     Active Substance: VOCLOSPORIN
     Dosage: FREQUENCY : TWICE A DAY;?
     Route: 048
     Dates: start: 20230601, end: 20230705
  2. MYCOPHENOLIC ACID [Suspect]
     Active Substance: MYCOPHENOLIC ACID
  3. MEDROL [Suspect]
     Active Substance: METHYLPREDNISOLONE
  4. LASIX [Suspect]
     Active Substance: FUROSEMIDE
  5. LOSARTAN [Suspect]
     Active Substance: LOSARTAN

REACTIONS (1)
  - Drug-induced liver injury [None]

NARRATIVE: CASE EVENT DATE: 20230707
